FAERS Safety Report 4414902-3 (Version None)
Quarter: 2004Q3

REPORT INFORMATION
  Report Type: 
  Country: None (occurrence: None)
  Receive Date: 20040804
  Receipt Date: 20040728
  Transmission Date: 20050211
  Serious: Yes (Other)
  Sender: FDA-Public Use
  Company Number: 200415704US

PATIENT
  Sex: Female
  Weight: 66.3 kg

DRUGS (4)
  1. ARAVA [Suspect]
     Indication: RHEUMATOID ARTHRITIS
     Dates: end: 20040501
  2. PLAQUENIL [Concomitant]
     Indication: SYSTEMIC LUPUS ERYTHEMATOSUS
  3. ATENOLOL [Concomitant]
     Indication: HYPERTENSION
  4. IMURAN [Concomitant]
     Dosage: DOSE: UNK

REACTIONS (4)
  - HIP ARTHROPLASTY [None]
  - LIVER FUNCTION TEST ABNORMAL [None]
  - OPERATIVE HAEMORRHAGE [None]
  - PYREXIA [None]
